FAERS Safety Report 7794065 (Version 3)
Quarter: 2013Q4

REPORT INFORMATION
  Report Type: Spontaneous
  Country: US (occurrence: US)
  Receive Date: 20110201
  Receipt Date: 20131113
  Transmission Date: 20140711
  Serious: Yes (Life-Threatening, Other)
  Sender: FDA-Public Use
  Company Number: US-BAYER-2011-009648

PATIENT
  Age: 31 Year
  Sex: Female

DRUGS (12)
  1. OCELLA [Suspect]
     Dosage: UNK
     Dates: start: 20090417, end: 20091130
  2. YAZ [Suspect]
     Dosage: UNK
     Dates: start: 20080822, end: 20090417
  3. YASMIN [Suspect]
  4. GIANVI [Suspect]
  5. ZOFRAN [Concomitant]
     Route: 042
  6. DILAUDID [Concomitant]
     Dosage: UNK
     Route: 042
  7. NEXIUM [Concomitant]
     Route: 042
  8. TORADOL [Concomitant]
     Route: 042
  9. CIPRO [Concomitant]
     Dosage: 500 MG, UNK
     Route: 048
  10. MOTRIN [Concomitant]
  11. LIDOCAINE [Concomitant]
     Dosage: 2 %, UNK
  12. EPINEPHRINE [Concomitant]

REACTIONS (7)
  - Cholecystitis chronic [None]
  - Cholecystectomy [None]
  - Injury [None]
  - Pain [None]
  - Anxiety [None]
  - Anhedonia [None]
  - Fear of disease [None]
